FAERS Safety Report 11792443 (Version 1)
Quarter: 2015Q4

REPORT INFORMATION
  Report Type: Spontaneous
  Country: UG (occurrence: UG)
  Receive Date: 20151202
  Receipt Date: 20151202
  Transmission Date: 20160305
  Serious: Yes (Other)
  Sender: FDA-Public Use
  Company Number: UG-AUROBINDO-AUR-APL-2015-10779

PATIENT
  Age: 15 Year
  Sex: Female

DRUGS (8)
  1. NEVIRAPINE. [Suspect]
     Active Substance: NEVIRAPINE
     Indication: HIV INFECTION
     Route: 065
  2. FUROSEMIDE. [Concomitant]
     Active Substance: FUROSEMIDE
     Indication: PRODUCT USED FOR UNKNOWN INDICATION
     Route: 065
  3. SPIRONOLACTONE. [Concomitant]
     Active Substance: SPIRONOLACTONE
     Indication: PRODUCT USED FOR UNKNOWN INDICATION
     Route: 065
  4. ZIDOVUDINE. [Suspect]
     Active Substance: ZIDOVUDINE
     Indication: HIV INFECTION
     Route: 065
  5. LAMIVUDINE. [Suspect]
     Active Substance: LAMIVUDINE
     Indication: HIV INFECTION
     Route: 065
  6. DIGOXIN. [Concomitant]
     Active Substance: DIGOXIN
     Indication: PRODUCT USED FOR UNKNOWN INDICATION
     Route: 065
  7. LISINOPRIL. [Concomitant]
     Active Substance: LISINOPRIL
     Indication: PRODUCT USED FOR UNKNOWN INDICATION
     Route: 065
  8. CARVEDILOL. [Concomitant]
     Active Substance: CARVEDILOL
     Indication: PRODUCT USED FOR UNKNOWN INDICATION
     Route: 065

REACTIONS (20)
  - Cardiothoracic ratio [Recovered/Resolved]
  - Muscular weakness [Recovered/Resolved]
  - Treatment noncompliance [Recovered/Resolved]
  - Drug dose omission [Recovered/Resolved]
  - Left ventricular dysfunction [Recovered/Resolved]
  - Pericardial effusion [Recovered/Resolved]
  - Electrocardiogram ST-T change [Recovered/Resolved]
  - Pulse volume decreased [Recovered/Resolved]
  - Hepatomegaly [Recovered/Resolved]
  - Left ventricular hypertrophy [Recovered/Resolved]
  - Heart sounds abnormal [Recovered/Resolved]
  - Cough [Recovered/Resolved]
  - Low density lipoprotein increased [Recovered/Resolved]
  - Cardiomegaly [Recovered/Resolved]
  - Haemoptysis [Recovered/Resolved]
  - Dyspnoea [Recovered/Resolved]
  - Sinus tachycardia [Recovered/Resolved]
  - Crepitations [Recovered/Resolved]
  - Abdominal pain upper [Recovered/Resolved]
  - Fluid retention [Recovered/Resolved]
